FAERS Safety Report 7942608-2 (Version None)
Quarter: 2011Q4

REPORT INFORMATION
  Report Type: 
  Country: None (occurrence: None)
  Receive Date: 20111128
  Receipt Date: 20111121
  Transmission Date: 20120403
  Serious: Yes (Other)
  Sender: FDA-Public Use
  Company Number: GR-BRISTOL-MYERS SQUIBB COMPANY-16251910

PATIENT
  Age: 49 Year
  Sex: Male

DRUGS (8)
  1. MELPHALAN HYDROCHLORIDE [Suspect]
  2. CISPLATIN [Suspect]
  3. CYCLOPHOSPHAMIDE [Suspect]
  4. CARMUSTINE [Suspect]
  5. DEXAMETHASONE [Suspect]
  6. ETOPOSIDE [Suspect]
  7. IFOSFAMIDE [Suspect]
  8. CYTARABINE [Suspect]

REACTIONS (1)
  - MYELODYSPLASTIC SYNDROME [None]
